FAERS Safety Report 6802795-6 (Version None)
Quarter: 2010Q2

REPORT INFORMATION
  Report Type: 
  Country: None (occurrence: None)
  Receive Date: 20100628
  Receipt Date: 20100624
  Transmission Date: 20101027
  Serious: Yes (Life-Threatening, Other)
  Sender: FDA-Public Use
  Company Number: PHHY2009BR23165

PATIENT
  Age: 82 Year
  Sex: Female

DRUGS (1)
  1. EXELON [Suspect]
     Dosage: 18 MG
     Route: 062

REACTIONS (10)
  - ABNORMAL BEHAVIOUR [None]
  - AGGRESSION [None]
  - AGITATION [None]
  - DELIRIUM [None]
  - DEPRESSION [None]
  - HALLUCINATION [None]
  - NERVOUSNESS [None]
  - OBSESSIVE-COMPULSIVE DISORDER [None]
  - STRESS [None]
  - SUICIDAL IDEATION [None]
